FAERS Safety Report 11507312 (Version 1)
Quarter: 2015Q3

REPORT INFORMATION
  Report Type: Spontaneous
  Country: US (occurrence: US)
  Receive Date: 20150915
  Receipt Date: 20150915
  Transmission Date: 20151125
  Serious: Yes (Other)
  Sender: FDA-Public Use
  Company Number: US-JUBILANT CADISTA PHARMACEUTICALS-2015JUB00274

PATIENT
  Sex: Female

DRUGS (2)
  1. INTRAVENOUS IMMUNE GLOBULIN [Concomitant]
     Indication: NEONATAL ALLOIMMUNE THROMBOCYTOPENIA
     Route: 042
  2. PREDNISONE. [Suspect]
     Active Substance: PREDNISONE
     Indication: NEONATAL ALLOIMMUNE THROMBOCYTOPENIA
     Dosage: UNK, 1X/DAY

REACTIONS (2)
  - Diabetes mellitus [Unknown]
  - Exposure during pregnancy [Unknown]
